FAERS Safety Report 16590566 (Version 1)
Quarter: 2019Q3

REPORT INFORMATION
  Report Type: Spontaneous
  Country: US (occurrence: US)
  Receive Date: 20190717
  Receipt Date: 20190717
  Transmission Date: 20191004
  Serious: No
  Sender: FDA-Public Use
  Company Number: None

PATIENT
  Age: 59 Year
  Sex: Female
  Weight: 62.1 kg

DRUGS (3)
  1. SYSTANE NIGHTTIME [Suspect]
     Active Substance: MINERAL OIL\PETROLATUM
  2. BLINK GEL TEARS [Suspect]
     Active Substance: POLYETHYLENE GLYCOL 400
  3. REFRESH PLUS [Suspect]
     Active Substance: CARBOXYMETHYLCELLULOSE SODIUM
     Indication: DRY EYE
     Route: 047
     Dates: start: 20190523, end: 20190526

REACTIONS (2)
  - Eye disorder [None]
  - Condition aggravated [None]

NARRATIVE: CASE EVENT DATE: 20190526
